FAERS Safety Report 10979021 (Version 1)
Quarter: 2015Q1

REPORT INFORMATION
  Report Type: Spontaneous
  Country: US (occurrence: None)
  Receive Date: 20150226
  Receipt Date: 20150226
  Transmission Date: 20150721
  Serious: No
  Sender: FDA-Public Use
  Company Number: TPA2010A04325

PATIENT
  Age: 68 Year
  Sex: Female
  Weight: 65.77 kg

DRUGS (5)
  1. DEMADEX (TORASEMIDE) [Concomitant]
  2. ULORIC [Suspect]
     Active Substance: FEBUXOSTAT
     Indication: GOUT
     Dosage: 40 MG, QAM, PER ORAL
     Route: 048
     Dates: start: 201006
  3. KLONOPIN [Concomitant]
     Active Substance: CLONAZEPAM
  4. LOVASTATIN (LOVASTATIN) [Concomitant]
     Active Substance: LOVASTATIN
  5. COLCHICINE (COLCHICINE) [Concomitant]
     Active Substance: COLCHICINE

REACTIONS (1)
  - Fatigue [None]
